FAERS Safety Report 4524544-7 (Version None)
Quarter: 2005Q1

REPORT INFORMATION
  Report Type: 
  Country: None (occurrence: None)
  Receive Date: 20041117
  Receipt Date: 20040908
  Transmission Date: 20050727
  Serious: Yes (Disabling, Other)
  Sender: FDA-Public Use
  Company Number: US-JNJFOC-20040205634

PATIENT
  Age: 55 Year
  Sex: Male
  Weight: 96.6162 kg

DRUGS (6)
  1. LEVAQUIN [Suspect]
     Indication: PROSTATITIS
     Dosage: 500 MG, 1 IN 1 DAY
     Dates: start: 20031027, end: 20031110
  2. ATENOLOL [Concomitant]
  3. PROCARDIA [Concomitant]
  4. PREDNISONE [Concomitant]
  5. CYCLOSPORINE [Concomitant]
  6. MYCOPHENOLATE (MYCOPHENOLATE MOFETIL) [Concomitant]

REACTIONS (2)
  - TENDON RUPTURE [None]
  - TENDONITIS [None]
